FAERS Safety Report 5802861-8 (Version None)
Quarter: 2008Q3

REPORT INFORMATION
  Report Type: 
  Country: None (occurrence: None)
  Receive Date: 20080708
  Receipt Date: 20080627
  Transmission Date: 20090109
  Serious: Yes (Life-Threatening, Hospitalization, Disabling, Other)
  Sender: FDA-Public Use
  Company Number: FR-JNJFOC-20080306635

PATIENT
  Age: 50 Year
  Sex: Male
  Weight: 106 kg

DRUGS (10)
  1. REMICADE [Suspect]
     Dosage: 16TH INFUSION
     Route: 042
  2. REMICADE [Suspect]
     Dosage: 13 INFUSIONS
     Route: 042
  3. REMICADE [Suspect]
     Route: 042
  4. REMICADE [Suspect]
     Indication: RHEUMATOID ARTHRITIS
     Route: 042
  5. CORTANCYL [Suspect]
     Indication: RHEUMATOID ARTHRITIS
  6. KETOPROFEN [Suspect]
     Indication: PAIN
  7. ARAVA [Suspect]
     Indication: RHEUMATOID ARTHRITIS
  8. COZAAR [Concomitant]
  9. TENORMIN [Concomitant]
  10. INIPOMP [Concomitant]

REACTIONS (8)
  - DIVERTICULAR PERFORATION [None]
  - DIVERTICULITIS [None]
  - GASTROINTESTINAL HAEMORRHAGE [None]
  - MULTI-ORGAN FAILURE [None]
  - NECROTISING COLITIS [None]
  - SEPTIC SHOCK [None]
  - SHOCK HAEMORRHAGIC [None]
  - WOUND EVISCERATION [None]
